FAERS Safety Report 7175892-6 (Version None)
Quarter: 2010Q4

REPORT INFORMATION
  Report Type: 
  Country: None (occurrence: None)
  Receive Date: 20101220
  Receipt Date: 20100506
  Transmission Date: 20110411
  Serious: No
  Sender: FDA-Public Use
  Company Number: US-AMGEN-TCS403679

PATIENT

DRUGS (4)
  1. ENBREL [Suspect]
     Indication: RHEUMATOID ARTHRITIS
     Dosage: 50 MG, QWK
     Route: 058
     Dates: start: 20060101
  2. ENBREL [Suspect]
     Indication: PSORIATIC ARTHROPATHY
  3. ENBREL [Suspect]
     Indication: PSORIASIS
  4. METHOTREXATE [Concomitant]
     Dosage: 2.5 MG, QWK
     Route: 048
     Dates: start: 20060101

REACTIONS (6)
  - ARTHRITIS [None]
  - DRUG INEFFECTIVE [None]
  - JOINT DESTRUCTION [None]
  - OEDEMA PERIPHERAL [None]
  - PAIN IN EXTREMITY [None]
  - PSORIASIS [None]
